FAERS Safety Report 7820503-7 (Version None)
Quarter: 2011Q4

REPORT INFORMATION
  Report Type: 
  Country: None (occurrence: None)
  Receive Date: 20111018
  Receipt Date: 20111011
  Transmission Date: 20120403
  Serious: Yes (Hospitalization, Other)
  Sender: FDA-Public Use
  Company Number: US-GILEAD-2011-0044704

PATIENT

DRUGS (1)
  1. LETAIRIS [Suspect]
     Indication: PRODUCT USED FOR UNKNOWN INDICATION
     Dosage: 5 MG, UNK
     Dates: start: 20110720

REACTIONS (4)
  - ATRIAL FIBRILLATION [None]
  - MUSCULOSKELETAL CHEST PAIN [None]
  - CARDIAC PACEMAKER INSERTION [None]
  - SYNCOPE [None]
